FAERS Safety Report 17354714 (Version 1)
Quarter: 2020Q1

REPORT INFORMATION
  Report Type: Spontaneous
  Country: US (occurrence: US)
  Receive Date: 20200131
  Receipt Date: 20200131
  Transmission Date: 20200409
  Serious: Yes (Death, Other)
  Sender: FDA-Public Use
  Company Number: US-SA-2020SA022106

PATIENT
  Age: 79 Year
  Sex: Male

DRUGS (1)
  1. GOLD BOND ORIGINAL STRENGTH POWDER [Suspect]
     Active Substance: MENTHOL\ZINC OXIDE
     Dosage: UNK

REACTIONS (3)
  - Lung neoplasm malignant [Fatal]
  - Occupational exposure to toxic agent [Fatal]
  - Impaired work ability [Unknown]

NARRATIVE: CASE EVENT DATE: 20181129
